FAERS Safety Report 5709102-0 (Version None)
Quarter: 2008Q2

REPORT INFORMATION
  Report Type: 
  Country: None (occurrence: None)
  Receive Date: 20080416
  Receipt Date: 20080416
  Transmission Date: 20081010
  Serious: Yes (Other)
  Sender: FDA-Public Use
  Company Number: None

PATIENT
  Age: 25 Year
  Sex: Female
  Weight: 90.7194 kg

DRUGS (1)
  1. YASMIN [Suspect]
     Indication: CONTRACEPTION
     Dosage: ONE PILL ONCE DAILY PO
     Route: 048
     Dates: start: 20040416, end: 20080415

REACTIONS (2)
  - SPIDER VEIN [None]
  - VEIN PAIN [None]
